FAERS Safety Report 5310254-5 (Version None)
Quarter: 2007Q2

REPORT INFORMATION
  Report Type: 
  Country: None (occurrence: None)
  Receive Date: 20070427
  Receipt Date: 20070425
  Transmission Date: 20071010
  Serious: Yes (Hospitalization)
  Sender: FDA-Public Use
  Company Number: FR-BRISTOL-MYERS SQUIBB COMPANY-13761325

PATIENT
  Age: 78 Year
  Sex: Male

DRUGS (5)
  1. PRAVADUAL TABS 81 MG/40 MG [Suspect]
     Indication: MYOCARDIAL INFARCTION
     Route: 048
     Dates: start: 20061015, end: 20070314
  2. PLAVIX [Suspect]
     Dates: start: 20061015, end: 20070314
  3. ALLOPURINOL [Concomitant]
  4. CARDENSIEL [Concomitant]
  5. TRIATEC [Concomitant]

REACTIONS (2)
  - CEREBELLAR HAEMORRHAGE [None]
  - HYPERTENSION [None]
